FAERS Safety Report 23648822 (Version 2)
Quarter: 2024Q1

REPORT INFORMATION
  Report Type: Spontaneous
  Country: SE (occurrence: SE)
  Receive Date: 20240319
  Receipt Date: 20240320
  Transmission Date: 20240410
  Serious: Yes (Other)
  Sender: FDA-Public Use
  Company Number: SE-TEVA-VS-3171521

PATIENT
  Age: 56 Year
  Sex: Female

DRUGS (1)
  1. PREDNISOLONE [Suspect]
     Active Substance: PREDNISOLONE
     Indication: Product used for unknown indication
     Route: 065
     Dates: end: 202108

REACTIONS (4)
  - Pathological fracture [Unknown]
  - Lower limb fracture [Unknown]
  - Osteoporosis [Unknown]
  - Pain [Unknown]

NARRATIVE: CASE EVENT DATE: 20210803
